FAERS Safety Report 23695112 (Version 1)
Quarter: 2024Q2

REPORT INFORMATION
  Report Type: Spontaneous
  Country: US (occurrence: US)
  Receive Date: 20240402
  Receipt Date: 20240402
  Transmission Date: 20240716
  Serious: No
  Sender: FDA-Public Use
  Company Number: US-002147023-NVSC2024US069642

PATIENT
  Sex: Female

DRUGS (1)
  1. VALSARTAN [Suspect]
     Active Substance: VALSARTAN
     Indication: Product used for unknown indication
     Dosage: 40 MG (FOR 2.5 MONTHS)
     Route: 065

REACTIONS (6)
  - Dyspnoea [Unknown]
  - Throat tightness [Unknown]
  - Fatigue [Unknown]
  - Headache [Unknown]
  - Heart rate irregular [Unknown]
  - Malaise [Unknown]
